FAERS Safety Report 5564470-8 (Version None)
Quarter: 2007Q4

REPORT INFORMATION
  Report Type: 
  Country: None (occurrence: None)
  Receive Date: 20071218
  Receipt Date: 20071212
  Transmission Date: 20080405
  Serious: Yes (Other)
  Sender: FDA-Public Use
  Company Number: DE-JNJFOC-20071108104

PATIENT
  Sex: Male
  Weight: 63 kg

DRUGS (5)
  1. RISPERDAL [Suspect]
     Route: 065
  2. RISPERDAL [Suspect]
     Indication: SCHIZOAFFECTIVE DISORDER
     Route: 065
  3. ERGENYL CHRONO [Concomitant]
     Route: 048
  4. ERGENYL CHRONO [Concomitant]
     Indication: GRAND MAL CONVULSION
     Route: 048
  5. AKINETON [Concomitant]
     Route: 048

REACTIONS (5)
  - ELECTROENCEPHALOGRAM ABNORMAL [None]
  - EXTRAPYRAMIDAL DISORDER [None]
  - FATIGUE [None]
  - LISTLESS [None]
  - PARANOIA [None]
